FAERS Safety Report 14421607 (Version 1)
Quarter: 2018Q1

REPORT INFORMATION
  Report Type: Other
  Country: US (occurrence: US)
  Receive Date: 20180122
  Receipt Date: 20180122
  Transmission Date: 20180509
  Serious: No
  Sender: FDA-Public Use
  Company Number: US-INTERCEPT-PMOCA2017001337

PATIENT

DRUGS (3)
  1. UDCA [Concomitant]
     Active Substance: URSODIOL
  2. DOXEPIN [Concomitant]
     Active Substance: DOXEPIN
     Indication: PRURITUS
  3. OCALIVA [Suspect]
     Active Substance: OBETICHOLIC ACID
     Indication: PRIMARY BILIARY CHOLANGITIS
     Dosage: 5 MG, QD
     Route: 048
     Dates: start: 20170801, end: 20180102

REACTIONS (3)
  - Pruritus [Unknown]
  - Blood alkaline phosphatase increased [Unknown]
  - Drug ineffective [Unknown]
